FAERS Safety Report 6122518-6 (Version None)
Quarter: 2009Q1

REPORT INFORMATION
  Report Type: 
  Country: None (occurrence: None)
  Receive Date: 20090318
  Receipt Date: 20081106
  Transmission Date: 20090719
  Serious: No
  Sender: FDA-Public Use
  Company Number: US-ASTRAZENECA-2008UW15513

PATIENT
  Age: 75 Year
  Sex: Female
  Weight: 54.4 kg

DRUGS (8)
  1. SYMBICORT [Suspect]
     Indication: ASTHMA
     Dosage: 160/4.5 1 PUFF BID
     Route: 055
  2. RECLAST [Concomitant]
  3. THYROID TAB [Concomitant]
  4. CALCIUM [Concomitant]
  5. ASCORBIC ACID [Concomitant]
  6. VITAMIN D [Concomitant]
  7. ASPIRIN [Concomitant]
  8. ZYRTEC [Concomitant]

REACTIONS (2)
  - PRURITUS [None]
  - URTICARIA [None]
